FAERS Safety Report 9453135 (Version 1)
Quarter: 2013Q3

REPORT INFORMATION
  Report Type: Spontaneous
  Country: US (occurrence: US)
  Receive Date: 20130812
  Receipt Date: 20130812
  Transmission Date: 20140515
  Serious: Yes (Other)
  Sender: FDA-Public Use
  Company Number: PHEH2013US017027

PATIENT
  Age: 41 Year
  Sex: Male

DRUGS (1)
  1. TEKTURNA [Suspect]

REACTIONS (20)
  - Diabetic nephropathy [Unknown]
  - Blindness [Unknown]
  - Lymphoedema [Unknown]
  - Metabolic acidosis [Unknown]
  - Malignant hypertension [Unknown]
  - Venous insufficiency [Unknown]
  - Anaemia [Unknown]
  - Arteriovenous fistula [Unknown]
  - Hypertension [Unknown]
  - Renal failure chronic [Unknown]
  - Decreased appetite [Unknown]
  - Sleep apnoea syndrome [Unknown]
  - Constipation [Unknown]
  - Obesity [Unknown]
  - Headache [Unknown]
  - Gastrooesophageal reflux disease [Unknown]
  - Retching [Unknown]
  - Nausea [Unknown]
  - Vomiting [Unknown]
  - Hyperkalaemia [Unknown]
